FAERS Safety Report 6262319-1 (Version None)
Quarter: 2009Q3

REPORT INFORMATION
  Report Type: 
  Country: None (occurrence: None)
  Receive Date: 20090709
  Receipt Date: 20090701
  Transmission Date: 20100115
  Serious: Yes (Hospitalization, Other)
  Sender: FDA-Public Use
  Company Number: US-CELGENEUS-163-50794-09051676

PATIENT
  Sex: Male

DRUGS (55)
  1. VIDAZA [Suspect]
     Route: 051
     Dates: start: 20090519, end: 20090520
  2. VIDAZA [Suspect]
     Route: 051
     Dates: start: 20090521
  3. VELCADE [Suspect]
     Dates: start: 20090519, end: 20090520
  4. VELCADE [Suspect]
     Dates: start: 20090521
  5. ACETAMINOPHEN [Concomitant]
     Indication: DRUG USE FOR UNKNOWN INDICATION
     Route: 065
     Dates: start: 20090520, end: 20090520
  6. COZAAR [Concomitant]
     Indication: HYPERTENSION
     Route: 048
     Dates: start: 20090530
  7. COZAAR [Concomitant]
     Route: 048
     Dates: start: 20080326, end: 20090529
  8. PLENDIL [Concomitant]
     Indication: HYPERTENSION
     Route: 048
     Dates: start: 20080811, end: 20090529
  9. FUROSEMIDE [Concomitant]
     Indication: HYPERTENSION
     Route: 048
     Dates: start: 20080326
  10. FUROSEMIDE [Concomitant]
     Route: 051
     Dates: start: 20090520
  11. FUROSEMIDE [Concomitant]
     Route: 051
     Dates: start: 20090521
  12. METOPROLOL [Concomitant]
     Indication: HYPERTENSION
     Route: 048
     Dates: start: 20090530
  13. METOPROLOL [Concomitant]
     Route: 048
     Dates: start: 20080326, end: 20090529
  14. FLUCONAZOLE [Concomitant]
     Indication: ANTI-INFECTIVE THERAPY
     Route: 048
     Dates: start: 20090604
  15. FLUCONAZOLE [Concomitant]
     Route: 048
     Dates: start: 20090528
  16. AVELOX [Concomitant]
     Indication: ANTI-INFECTIVE THERAPY
     Route: 048
     Dates: start: 20090604
  17. AVELOX [Concomitant]
     Route: 048
     Dates: start: 20080326, end: 20080530
  18. VALTREX [Concomitant]
     Indication: ANTI-INFECTIVE THERAPY
     Route: 048
     Dates: start: 20090604, end: 20090607
  19. VALTREX [Concomitant]
     Route: 048
     Dates: start: 20090526
  20. GLUCOPHAGE [Concomitant]
     Route: 048
     Dates: start: 20090530, end: 20090607
  21. GLUCOPHAGE [Concomitant]
     Route: 048
     Dates: start: 20080326, end: 20090529
  22. ONDANSETRON [Concomitant]
     Indication: GASTROINTESTINAL DISORDER
     Route: 048
     Dates: start: 20090519
  23. ONDANSETRON [Concomitant]
     Route: 048
     Dates: start: 20090521
  24. PEPCID [Concomitant]
     Indication: GASTROINTESTINAL DISORDER
     Route: 048
     Dates: start: 20080326, end: 20090607
  25. PEPCID [Concomitant]
     Route: 048
     Dates: start: 20090608
  26. ALLOPURINOL [Concomitant]
     Indication: METABOLIC DISORDER
     Route: 048
     Dates: start: 20090530, end: 20090607
  27. ALLOPURINOL [Concomitant]
     Route: 048
     Dates: start: 20090518, end: 20090529
  28. ALLOPURINOL [Concomitant]
     Route: 048
     Dates: start: 20090520
  29. CALCIUM ACETATE [Concomitant]
     Indication: METABOLIC DISORDER
     Route: 048
     Dates: start: 20090530, end: 20090607
  30. LOPID [Concomitant]
     Indication: METABOLIC DISORDER
     Route: 048
     Dates: start: 20080326, end: 20090607
  31. POTASSIUM CHLORIDE [Concomitant]
     Indication: METABOLIC DISORDER
     Route: 048
     Dates: start: 20090604
  32. SIMVASTATIN [Concomitant]
     Indication: METABOLIC DISORDER
     Route: 048
     Dates: start: 20080326
  33. MULTI-VITAMINS [Concomitant]
     Route: 048
     Dates: start: 20080326
  34. VANCOMYCIN [Concomitant]
     Indication: DRUG USE FOR UNKNOWN INDICATION
     Route: 051
     Dates: start: 20090524
  35. VITAMIN K [Concomitant]
     Indication: DRUG USE FOR UNKNOWN INDICATION
     Route: 048
     Dates: start: 20090520
  36. INSULIN [Concomitant]
     Indication: DRUG USE FOR UNKNOWN INDICATION
     Dosage: SLIDING SCALE
     Route: 058
     Dates: start: 20090520
  37. POTASSIUM PHOSPHATES [Concomitant]
     Indication: DRUG USE FOR UNKNOWN INDICATION
     Route: 051
     Dates: start: 20090520
  38. LOSARTAN POTASSIUM [Concomitant]
     Indication: DRUG USE FOR UNKNOWN INDICATION
     Route: 048
     Dates: start: 20090522
  39. LIDOCAINE [Concomitant]
     Indication: DRUG USE FOR UNKNOWN INDICATION
     Route: 058
     Dates: start: 20090522
  40. SODIUM CHLORIDE [Concomitant]
     Indication: DRUG USE FOR UNKNOWN INDICATION
     Dosage: 75ML/HOUR
     Route: 051
     Dates: start: 20090522
  41. ACETYLCYSTEINE [Concomitant]
     Indication: DRUG USE FOR UNKNOWN INDICATION
     Route: 048
     Dates: start: 20090526
  42. RASBURICASE [Concomitant]
     Route: 051
     Dates: start: 20090520
  43. ACTIVASE [Concomitant]
     Indication: DRUG USE FOR UNKNOWN INDICATION
     Route: 051
     Dates: start: 20090520
  44. CLOTRIMAZOLE [Concomitant]
     Indication: DRUG USE FOR UNKNOWN INDICATION
     Route: 048
     Dates: start: 20090501
  45. DIPHENHYDRAMINE HCL [Concomitant]
     Indication: DRUG USE FOR UNKNOWN INDICATION
     Route: 048
     Dates: start: 20090524
  46. LOPERAMIDE HYDROCHLORIDE [Concomitant]
     Indication: DRUG USE FOR UNKNOWN INDICATION
     Route: 048
     Dates: start: 20090501
  47. SODIUM BICARBONATE [Concomitant]
     Indication: DRUG USE FOR UNKNOWN INDICATION
     Route: 048
     Dates: start: 20090501
  48. LIDOCAINE HCL VISCOUS [Concomitant]
     Indication: DRUG USE FOR UNKNOWN INDICATION
     Route: 048
     Dates: start: 20090501
  49. SUCRALFATE [Concomitant]
     Indication: DRUG USE FOR UNKNOWN INDICATION
     Route: 048
     Dates: start: 20090501
  50. LORAZEPAM [Concomitant]
     Indication: DRUG USE FOR UNKNOWN INDICATION
     Route: 051
     Dates: start: 20090501
  51. MAGNESIUM/ALUM HYDROXIDE [Concomitant]
     Indication: DRUG USE FOR UNKNOWN INDICATION
     Route: 048
     Dates: start: 20090501
  52. DOCUSATE [Concomitant]
     Indication: DRUG USE FOR UNKNOWN INDICATION
     Route: 048
     Dates: start: 20090501
  53. SENNA [Concomitant]
     Indication: DRUG USE FOR UNKNOWN INDICATION
     Route: 048
     Dates: start: 20090501
  54. ZOLPIDEM [Concomitant]
     Indication: DRUG USE FOR UNKNOWN INDICATION
     Route: 048
     Dates: start: 20090501
  55. HYDRALAZINE HCL [Concomitant]
     Indication: DRUG USE FOR UNKNOWN INDICATION
     Route: 051
     Dates: start: 20090501

REACTIONS (2)
  - PNEUMONIA [None]
  - TUMOUR LYSIS SYNDROME [None]
